FAERS Safety Report 14891534 (Version 1)
Quarter: 2018Q2

REPORT INFORMATION
  Report Type: Spontaneous
  Country: GR (occurrence: GR)
  Receive Date: 20180514
  Receipt Date: 20180514
  Transmission Date: 20180711
  Serious: Yes (Hospitalization, Other)
  Sender: FDA-Public Use
  Company Number: GR-PFIZER INC-2018193613

PATIENT
  Age: 70 Year
  Sex: Female

DRUGS (3)
  1. PRADAXA [Concomitant]
     Active Substance: DABIGATRAN ETEXILATE MESYLATE
     Dosage: UNK
  2. LEXOTANIL [Concomitant]
     Active Substance: BROMAZEPAM
     Indication: ANXIETY
     Dosage: UNK
  3. ANGORON [Suspect]
     Active Substance: AMIODARONE HYDROCHLORIDE
     Dosage: UNK
     Route: 048

REACTIONS (5)
  - Organising pneumonia [Not Recovered/Not Resolved]
  - Dyspnoea [Not Recovered/Not Resolved]
  - Corneal deposits [Unknown]
  - Haematocrit decreased [Unknown]
  - Atrial fibrillation [Unknown]
